FAERS Safety Report 22257811 (Version 2)
Quarter: 2023Q2

REPORT INFORMATION
  Report Type: Spontaneous
  Country: RU (occurrence: None)
  Receive Date: 20230427
  Receipt Date: 20230501
  Transmission Date: 20230722
  Serious: Yes (Disabling)
  Sender: FDA-Public Use
  Company Number: RU-ROCHE-3338111

PATIENT

DRUGS (1)
  1. AVASTIN [Suspect]
     Active Substance: BEVACIZUMAB
     Indication: Retinal detachment
     Dosage: DAILY
     Route: 065

REACTIONS (2)
  - Blindness [Unknown]
  - Off label use [Unknown]
